FAERS Safety Report 24554714 (Version 1)
Quarter: 2024Q4

REPORT INFORMATION
  Report Type: Report from Study
  Country: CN (occurrence: CN)
  Receive Date: 20241028
  Receipt Date: 20241028
  Transmission Date: 20250114
  Serious: Yes (Other)
  Sender: ROCHE
  Company Number: CN-ROCHE-10000114280

PATIENT

DRUGS (7)
  1. BEVACIZUMAB [Suspect]
     Active Substance: BEVACIZUMAB
     Indication: Ovarian cancer recurrent
     Dosage: 7.5 MG/KG EVERY 3 WEEKS
     Route: 065
  2. DOXORUBICIN [Suspect]
     Active Substance: DOXORUBICIN
     Indication: Ovarian cancer recurrent
     Route: 065
  3. PACLITAXEL [Suspect]
     Active Substance: PACLITAXEL
     Indication: Ovarian cancer recurrent
     Route: 065
  4. PACLITAXEL [Suspect]
     Active Substance: PACLITAXEL
     Indication: Ovarian cancer recurrent
     Route: 065
  5. GEMCITABINE [Suspect]
     Active Substance: GEMCITABINE
     Indication: Ovarian cancer recurrent
     Route: 065
  6. IFOSFAMIDE [Suspect]
     Active Substance: IFOSFAMIDE
     Indication: Ovarian cancer recurrent
     Route: 065
  7. TOPOTECAN [Suspect]
     Active Substance: TOPOTECAN HYDROCHLORIDE
     Indication: Ovarian cancer recurrent
     Route: 065

REACTIONS (12)
  - Hypertension [Unknown]
  - Neutropenia [Unknown]
  - Leukopenia [Unknown]
  - Thrombocytopenia [Unknown]
  - Anaemia [Unknown]
  - Intestinal perforation [Unknown]
  - Thrombosis [Unknown]
  - Hepatic function abnormal [Unknown]
  - Nausea [Unknown]
  - Vomiting [Unknown]
  - Fatigue [Unknown]
  - Left ventricular failure [Unknown]
